FAERS Safety Report 21004134 (Version 2)
Quarter: 2022Q3

REPORT INFORMATION
  Report Type: Spontaneous
  Country: None (occurrence: US)
  Receive Date: 20220624
  Receipt Date: 20220901
  Transmission Date: 20221026
  Serious: Yes (Other)
  Sender: FDA-Public Use
  Company Number: US-Imprimis NJOF-2130244

PATIENT
  Sex: Female

DRUGS (1)
  1. CYCLOSPORINE/CHONDROITIN SULFATE PF [Suspect]
     Active Substance: CYCLOSPORINE
     Route: 047
     Dates: start: 20220610, end: 20220612

REACTIONS (1)
  - Rash [Unknown]
